FAERS Safety Report 12614168 (Version 1)
Quarter: 2016Q3

REPORT INFORMATION
  Report Type: Spontaneous
  Country: US (occurrence: US)
  Receive Date: 20160802
  Receipt Date: 20160802
  Transmission Date: 20161109
  Serious: No
  Sender: FDA-Public Use
  Company Number: US-PFIZER INC-2016343327

PATIENT
  Age: 39 Year
  Sex: Female

DRUGS (1)
  1. GABAPENTIN. [Suspect]
     Active Substance: GABAPENTIN
     Indication: ARTHRALGIA
     Dosage: 300MG CAPSULE 3 CAPSULES 4 TIMES A DAY
     Route: 048

REACTIONS (2)
  - Product use issue [Unknown]
  - Nerve injury [Unknown]
